FAERS Safety Report 7062241-7 (Version None)
Quarter: 2010Q4

REPORT INFORMATION
  Report Type: 
  Country: None (occurrence: None)
  Receive Date: 20101026
  Receipt Date: 20101014
  Transmission Date: 20110411
  Serious: Yes (Congenital Anomaly)
  Sender: FDA-Public Use
  Company Number: US-MYLANLABS-2010S1019100

PATIENT

DRUGS (3)
  1. RALTEGRAVIR [Suspect]
     Route: 064
  2. DARUNAVIR [Suspect]
     Route: 064
  3. ZIDOVUDINE [Suspect]
     Route: 064

REACTIONS (2)
  - CONGENITAL ANOMALY [None]
  - DRUG EXPOSURE DURING PREGNANCY [None]
